FAERS Safety Report 20511210 (Version 6)
Quarter: 2024Q2

REPORT INFORMATION
  Report Type: Spontaneous
  Country: FR (occurrence: FR)
  Receive Date: 20220224
  Receipt Date: 20240405
  Transmission Date: 20240716
  Serious: Yes (Other)
  Sender: FDA-Public Use
  Company Number: FR-MYLANLABS-2018M1058594

PATIENT
  Age: 37 Year
  Sex: Female

DRUGS (3)
  1. OLANZAPINE [Suspect]
     Active Substance: OLANZAPINE
     Indication: Anxiety
     Dosage: 5 MILLIGRAM
     Route: 065
     Dates: start: 20171212, end: 20180209
  2. OLANZAPINE [Suspect]
     Active Substance: OLANZAPINE
     Dosage: 7.5 MILLIGRAM
     Route: 065
     Dates: start: 201712, end: 201802
  3. ZOPICLONE [Concomitant]
     Active Substance: ZOPICLONE
     Dosage: UNK
     Route: 065

REACTIONS (6)
  - Disability [Unknown]
  - Psychiatric symptom [Not Recovered/Not Resolved]
  - Urinary incontinence [Unknown]
  - Injury [Unknown]
  - Weight increased [Not Recovered/Not Resolved]
  - Quality of life decreased [Unknown]
